FAERS Safety Report 7681324-1 (Version None)
Quarter: 2011Q3

REPORT INFORMATION
  Report Type: 
  Country: None (occurrence: None)
  Receive Date: 20110809
  Receipt Date: 20110804
  Transmission Date: 20111222
  Serious: Yes (Death, Hospitalization)
  Sender: FDA-Public Use
  Company Number: 2011SP018098

PATIENT
  Age: 73 Year
  Sex: Male
  Weight: 80 kg

DRUGS (24)
  1. DIGOXIN [Concomitant]
  2. COREG [Concomitant]
  3. BENICAR HCT [Concomitant]
  4. TRENTAL [Concomitant]
  5. SENNA [Concomitant]
  6. AMARYL [Concomitant]
  7. OMEPRAZOLE [Concomitant]
  8. CATAPRES [Concomitant]
  9. LANTUS [Concomitant]
  10. WELLBUTRIN [Concomitant]
  11. ZOFRAN [Concomitant]
  12. FLAGYL [Concomitant]
  13. TEMODAR [Suspect]
     Indication: OLIGODENDROGLIOMA
     Dates: start: 20101102
  14. TEMODAR [Suspect]
     Indication: OLIGODENDROGLIOMA
     Dates: start: 20110309, end: 20110313
  15. METFORMIN HCL [Concomitant]
  16. LIPITOR [Concomitant]
  17. VITAMIN E [Concomitant]
  18. COMPAZINE [Concomitant]
  19. CANDESARTAN CILEXETIL [Concomitant]
  20. NITROGLYCERIN [Concomitant]
  21. TEMODAR [Concomitant]
  22. HUMULIN R [Concomitant]
  23. CARVEDILOL [Concomitant]
  24. ASPIRIN [Concomitant]

REACTIONS (24)
  - LARGE INTESTINAL HAEMORRHAGE [None]
  - GALLBLADDER DISORDER [None]
  - PERIPHERAL PULSE DECREASED [None]
  - CONVULSION [None]
  - URINARY INCONTINENCE [None]
  - OLIGODENDROGLIOMA [None]
  - HYPOREFLEXIA [None]
  - BLOOD GLUCOSE INCREASED [None]
  - ABDOMINAL PAIN [None]
  - SKIN HYPERPIGMENTATION [None]
  - ACUTE MYOCARDIAL INFARCTION [None]
  - DISEASE PROGRESSION [None]
  - HYPOPHAGIA [None]
  - PERIANAL ERYTHEMA [None]
  - SPIDER NAEVUS [None]
  - NAUSEA [None]
  - AGITATION [None]
  - DECREASED APPETITE [None]
  - FAECAL INCONTINENCE [None]
  - ASTHENIA [None]
  - CONFUSIONAL STATE [None]
  - VOMITING [None]
  - RENAL INFARCT [None]
  - CHOLECYSTITIS ACUTE [None]
